FAERS Safety Report 5364199-5 (Version None)
Quarter: 2007Q2

REPORT INFORMATION
  Report Type: 
  Country: None (occurrence: None)
  Receive Date: 20070620
  Receipt Date: 20070608
  Transmission Date: 20071010
  Serious: Yes (Other)
  Sender: FDA-Public Use
  Company Number: DE-PFIZER INC-2007048949

PATIENT
  Sex: Male

DRUGS (1)
  1. VIRACEPT [Suspect]

REACTIONS (1)
  - NEOPLASM MALIGNANT [None]
